FAERS Safety Report 12998439 (Version 2)
Quarter: 2017Q1

REPORT INFORMATION
  Report Type: Spontaneous
  Country: JP (occurrence: JP)
  Receive Date: 20161205
  Receipt Date: 20170109
  Transmission Date: 20170428
  Serious: Yes (Other)
  Sender: FDA-Public Use
  Company Number: JP-PFIZER INC-2016559384

PATIENT
  Age: 69 Year
  Sex: Female

DRUGS (15)
  1. SELARA 25MG [Suspect]
     Active Substance: EPLERENONE
     Indication: HYPERTENSION
     Dosage: 25 MG, 1X/DAY
     Route: 048
     Dates: start: 20161105, end: 20161118
  2. SELARA 25MG [Suspect]
     Active Substance: EPLERENONE
     Indication: CARDIAC FAILURE
  3. ANPLAG [Concomitant]
     Active Substance: SARPOGRELATE
     Indication: SYSTEMIC SCLERODERMA
     Dosage: 100 MG, 3X/DAY
     Dates: start: 2002
  4. LANSOPRAZOLE. [Concomitant]
     Active Substance: LANSOPRAZOLE
     Dosage: 15 MG, 1X/DAY
     Dates: start: 20161105
  5. ARTIST [Concomitant]
     Active Substance: CARVEDILOL
     Indication: MYOCARDIAL INFARCTION
     Dosage: 0.625 MG, 1X/DAY
     Dates: start: 20161105
  6. CARELOAD [Concomitant]
     Active Substance: BERAPROST SODIUM
     Indication: SYSTEMIC SCLERODERMA
     Dosage: 60 MG, 2X/DAY
     Dates: start: 201102
  7. NIFEDIPINE. [Concomitant]
     Active Substance: NIFEDIPINE
     Dosage: 40 MG, 1X/DAY
     Dates: start: 20161105
  8. FUROSEMIDE. [Concomitant]
     Active Substance: FUROSEMIDE
     Indication: CARDIAC FAILURE
     Dosage: 10 MG, 1X/DAY
     Dates: start: 20160831
  9. EFIENT [Concomitant]
     Active Substance: PRASUGREL HYDROCHLORIDE
     Indication: MYOCARDIAL INFARCTION
     Dosage: 3.75 MG, 1X/DAY
     Dates: start: 20161105
  10. MAGNESIUM OXIDE. [Concomitant]
     Active Substance: MAGNESIUM OXIDE
     Dosage: 660 MG, 3X/DAY
  11. COVERSYL [Concomitant]
     Active Substance: PERINDOPRIL
     Indication: CARDIAC FAILURE
     Dosage: 4 MG, 1X/DAY
     Dates: start: 20161105
  12. BAYASPIRIN [Concomitant]
     Active Substance: ASPIRIN
     Indication: MYOCARDIAL INFARCTION
     Dosage: 100 MG, 1X/DAY
     Dates: start: 20161105
  13. JUVELA N [Concomitant]
     Active Substance: TOCOPHERYL NICOTINATE, D-.ALPHA.
     Indication: SYSTEMIC SCLERODERMA
     Dosage: 200 MG, 3X/DAY
     Dates: start: 2002
  14. LIVALO [Concomitant]
     Active Substance: PITAVASTATIN CALCIUM
     Dosage: 4 MG, 1X/DAY
     Dates: start: 20161105
  15. TRACLEER [Concomitant]
     Active Substance: BOSENTAN
     Indication: SYSTEMIC SCLERODERMA
     Dosage: 62.5 MG, 1X/DAY
     Dates: start: 20160524

REACTIONS (1)
  - Blood sodium decreased [Recovered/Resolved]

NARRATIVE: CASE EVENT DATE: 20161116
